FAERS Safety Report 6925309-9 (Version None)
Quarter: 2010Q3

REPORT INFORMATION
  Report Type: 
  Country: None (occurrence: None)
  Receive Date: 20100810
  Receipt Date: 20100727
  Transmission Date: 20110219
  Serious: Yes (Other)
  Sender: FDA-Public Use
  Company Number: THQ2010A01917

PATIENT
  Age: 56 Year
  Sex: Female

DRUGS (6)
  1. ACTOPLUS MET [Suspect]
     Indication: DIABETES MELLITUS
     Dosage: 15/850 MG, 2 TABLETS (1 IN 1 D) PER ORAL
     Route: 048
     Dates: start: 20100101
  2. ATENOLOL AND CHLORTHALIDONE (CHLORTALIDONE, ATENOLOL) [Concomitant]
  3. OMEPRAZOLE [Concomitant]
  4. GABAPENTIN [Concomitant]
  5. BYETTA [Concomitant]
  6. INSULIN LISPRO, INSULIN LISPRO PROTAMINE SUSPENSION [Concomitant]

REACTIONS (1)
  - SCOTOMA [None]
